FAERS Safety Report 8609045-9 (Version None)
Quarter: 2012Q3

REPORT INFORMATION
  Report Type: 
  Country: None (occurrence: None)
  Receive Date: 20120821
  Receipt Date: 20120814
  Transmission Date: 20120928
  Serious: Yes (Death, Hospitalization, Other)
  Sender: FDA-Public Use
  Company Number: DE-JNJFOC-20080504182

PATIENT
  Age: 58 Year
  Sex: Male
  Weight: 115 kg

DRUGS (11)
  1. HUMIRA [Suspect]
     Dates: start: 20070905
  2. INFLIXIMAB [Suspect]
     Dosage: 1ST DOSE
     Route: 042
     Dates: start: 20070718
  3. HUMIRA [Suspect]
     Indication: INFLAMMATORY BOWEL DISEASE
     Dosage: 3RD VISIT, 2ND DOSE
     Dates: start: 20070919
  4. INFLIXIMAB [Suspect]
     Indication: CROHN'S DISEASE
     Dosage: 1ST DOSE
     Route: 042
     Dates: start: 20070718
  5. INFLIXIMAB [Suspect]
     Dosage: 2ND DOSE, 5MG/KG
     Route: 042
     Dates: start: 20070802
  6. DOXAZOSIN MESYLATE [Concomitant]
  7. HUMIRA [Suspect]
     Dosage: 4TH VISIT, 3RD DOSE
     Dates: start: 20071004
  8. AZATHIOPRINE SODIUM [Suspect]
     Indication: COLITIS ULCERATIVE
     Dates: start: 20020101, end: 20070701
  9. INFLIXIMAB [Suspect]
     Indication: COLITIS ULCERATIVE
     Dosage: 2ND DOSE, 5MG/KG
     Route: 042
     Dates: start: 20070802
  10. PIRETANIDE [Concomitant]
  11. LERCANDIPIN [Concomitant]

REACTIONS (6)
  - PANCYTOPENIA [None]
  - INFLAMMATORY BOWEL DISEASE [None]
  - PERITONITIS BACTERIAL [None]
  - PNEUMONIA FUNGAL [None]
  - HEPATOSPLENIC T-CELL LYMPHOMA [None]
  - SPLENECTOMY [None]
